FAERS Safety Report 7410684-1 (Version None)
Quarter: 2011Q2

REPORT INFORMATION
  Report Type: 
  Country: None (occurrence: None)
  Receive Date: 20110405
  Receipt Date: 20110323
  Transmission Date: 20111010
  Serious: Yes (Hospitalization)
  Sender: FDA-Public Use
  Company Number: 1000019523

PATIENT
  Age: 74 Year
  Sex: Male

DRUGS (6)
  1. ALBUTEROL (ALBUTEROL) (ALBUTEROL) [Concomitant]
  2. FUROSEMIDE [Concomitant]
  3. SPIRIVA (TIOTROPIUM BROMIDE) (TIOTROPIUM BROMIDE) [Concomitant]
  4. ROFLUMILAST (ROFLUMILAST) (500 MICROGRAM, TABLETS) [Suspect]
     Indication: CHRONIC OBSTRUCTIVE PULMONARY DISEASE
     Dosage: 500 MCG (500 MCG, 1 IN 1 D), ORAL
     Route: 048
     Dates: start: 20110309, end: 20110311
  5. OLMETEC PLUS (OLMESARTAN HYDROCHLOROTHIAZIDE) (OLMESARTAN, HYDROCHLORO [Concomitant]
  6. INSULIN HUMAN (INSULIN HUMAN) (INSULIN HUMAN) [Concomitant]

REACTIONS (2)
  - SUICIDAL IDEATION [None]
  - NERVOUSNESS [None]
